FAERS Safety Report 13918338 (Version 1)
Quarter: 2017Q3

REPORT INFORMATION
  Report Type: Spontaneous
  Country: US (occurrence: US)
  Receive Date: 20170829
  Receipt Date: 20170829
  Transmission Date: 20171127
  Serious: No
  Sender: FDA-Public Use
  Company Number: US-SA-2017SA141783

PATIENT
  Sex: Male
  Weight: 65.7 kg

DRUGS (19)
  1. FABRAZYME [Suspect]
     Active Substance: AGALSIDASE BETA
     Indication: LIPIDOSIS
     Route: 041
  2. MINERALS NOS/VITAMINS NOS [Concomitant]
     Dosage: DOSE: 1 TAB
     Route: 048
     Dates: start: 20110929
  3. ASPIRIN. [Concomitant]
     Active Substance: ASPIRIN
     Dosage: DOSE: 1 TAB
     Route: 048
     Dates: start: 20110929
  4. VITAMIN D3 [Concomitant]
     Active Substance: CHOLECALCIFEROL
     Dosage: 1 DOSE
     Route: 048
     Dates: start: 20110929
  5. PROGRAF [Concomitant]
     Active Substance: TACROLIMUS\TACROLIMUS ANHYDROUS
     Dosage: DOSE: 2 CAP
     Route: 048
     Dates: start: 20170131
  6. METOPROLOL SUCCINATE. [Concomitant]
     Active Substance: METOPROLOL SUCCINATE
     Dosage: DOSE: 2 TAB
     Route: 048
     Dates: start: 20170131
  7. ALENDRONATE [Concomitant]
     Active Substance: ALENDRONATE SODIUM
     Route: 048
     Dates: start: 20110929
  8. FABRAZYME [Suspect]
     Active Substance: AGALSIDASE BETA
     Indication: FABRY^S DISEASE
     Route: 041
  9. LISINOPRIL. [Concomitant]
     Active Substance: LISINOPRIL
     Dosage: DOSE: 1 TAB
     Route: 048
     Dates: start: 20140321
  10. FABRAZYME [Suspect]
     Active Substance: AGALSIDASE BETA
     Indication: FABRY^S DISEASE
     Route: 041
  11. FABRAZYME [Suspect]
     Active Substance: AGALSIDASE BETA
     Indication: LIPIDOSIS
     Route: 041
  12. NORMAL SALINE [Concomitant]
     Active Substance: SODIUM CHLORIDE
     Indication: FLUSHING
     Dates: start: 20170201
  13. EPINEPHRINE. [Concomitant]
     Active Substance: EPINEPHRINE
     Indication: ANAPHYLACTIC REACTION
     Dosage: AS DIRECTED
     Dates: start: 20170201
  14. CALCIUM ASCORBATE/CITRUS BIOFLAVONOIDS EXTRACT/HESPERIDIN/RUTOSIDE [Concomitant]
     Dosage: DOSE 1 TAB
     Route: 048
     Dates: start: 20110929
  15. MYFORTIC [Concomitant]
     Active Substance: MYCOPHENOLATE SODIUM
     Dosage: DOSE: 02 TAB
     Dates: start: 20110929
  16. POTASSIUM CHLORIDE. [Concomitant]
     Active Substance: POTASSIUM CHLORIDE
     Dosage: DOSE: 1 TAB
     Dates: start: 20110929
  17. LASIX [Concomitant]
     Active Substance: FUROSEMIDE
     Dosage: DOSE: 1 TAB
     Route: 048
     Dates: start: 20110929
  18. XARELTO [Concomitant]
     Active Substance: RIVAROXABAN
     Route: 048
     Dates: start: 20170131
  19. VITAMIN B12 [Concomitant]
     Active Substance: CYANOCOBALAMIN
     Dosage: DOSE: 1 TAB
     Route: 048
     Dates: start: 20110929

REACTIONS (1)
  - Localised infection [Unknown]
